FAERS Safety Report 20834027 (Version 2)
Quarter: 2022Q2

REPORT INFORMATION
  Report Type: Spontaneous
  Country: US (occurrence: US)
  Receive Date: 20220516
  Receipt Date: 20220614
  Transmission Date: 20220721
  Serious: No
  Sender: FDA-Public Use
  Company Number: US-JNJFOC-20220523578

PATIENT
  Age: 64 Year
  Sex: Female

DRUGS (3)
  1. STELARA [Suspect]
     Active Substance: USTEKINUMAB
     Indication: Crohn^s disease
     Route: 058
     Dates: start: 2015
  2. STELARA [Suspect]
     Active Substance: USTEKINUMAB
  3. OPIUM TINCTURE [PAPAVER SOMNIFERUM TINCTURE] [Concomitant]
     Indication: Crohn^s disease
     Route: 065

REACTIONS (3)
  - Drug ineffective [Unknown]
  - Product use issue [Unknown]
  - Off label use [Unknown]
